FAERS Safety Report 9639149 (Version 2)
Quarter: 2013Q4

REPORT INFORMATION
  Report Type: Spontaneous
  Country: US (occurrence: None)
  Receive Date: 20131021
  Receipt Date: 20131025
  Transmission Date: 20140711
  Serious: Yes (Hospitalization, Other)
  Sender: FDA-Public Use
  Company Number: ADR-2013-01870

PATIENT
  Age: 43 Year
  Sex: Male

DRUGS (1)
  1. BACLOFEN [Suspect]
     Indication: MUSCLE SPASTICITY
     Dates: start: 2008, end: 20130819

REACTIONS (6)
  - Withdrawal syndrome [None]
  - Implant site infection [None]
  - Pruritus [None]
  - Muscle spasticity [None]
  - Cellulitis [None]
  - Implant site cellulitis [None]
